FAERS Safety Report 6974221-8 (Version None)
Quarter: 2010Q3

REPORT INFORMATION
  Report Type: 
  Country: None (occurrence: None)
  Receive Date: 20100909
  Receipt Date: 20100831
  Transmission Date: 20110219
  Serious: Yes (Hospitalization)
  Sender: FDA-Public Use
  Company Number: US-US-EMD SERONO, INC.-7014462

PATIENT
  Sex: Female

DRUGS (11)
  1. REBIF [Suspect]
     Indication: MULTIPLE SCLEROSIS
     Route: 058
     Dates: start: 20100501
  2. GABAPENTIN [Concomitant]
     Indication: PAIN
     Dates: end: 20100501
  3. LISINOPRIL [Concomitant]
     Indication: HYPERTENSION
  4. OXYBUTYNIN [Concomitant]
     Indication: INCONTINENCE
  5. ALBUTEROL [Concomitant]
  6. FLONASE [Concomitant]
  7. FUROSEMIDE [Concomitant]
     Indication: HYPERTENSION
  8. GLUCOPHAGE [Concomitant]
     Indication: DIABETES MELLITUS
  9. LOVASTATIN [Concomitant]
  10. PRILOSEC [Concomitant]
  11. LANTUS [Concomitant]
     Indication: DIABETES MELLITUS

REACTIONS (8)
  - BLOOD GLUCOSE ABNORMAL [None]
  - EMOTIONAL DISORDER [None]
  - INJECTION SITE ERYTHEMA [None]
  - INJECTION SITE HAEMATOMA [None]
  - NAUSEA [None]
  - PAIN [None]
  - URINARY TRACT INFECTION [None]
  - VOMITING [None]
